FAERS Safety Report 13184492 (Version 1)
Quarter: 2017Q1

REPORT INFORMATION
  Report Type: Spontaneous
  Country: US (occurrence: US)
  Receive Date: 20170203
  Receipt Date: 20170203
  Transmission Date: 20170428
  Serious: No
  Sender: FDA-Public Use
  Company Number: None

PATIENT
  Age: 75 Year
  Sex: Male

DRUGS (1)
  1. NINLARO [Suspect]
     Active Substance: IXAZOMIB
     Dosage: 4MGS ONE PER WK X 3 WKS ORAL
     Route: 048

REACTIONS (2)
  - Erythema [None]
  - Rash [None]

NARRATIVE: CASE EVENT DATE: 20161115
